FAERS Safety Report 5393667-5 (Version None)
Quarter: 2007Q3

REPORT INFORMATION
  Report Type: 
  Country: None (occurrence: None)
  Receive Date: 20070723
  Receipt Date: 20070718
  Transmission Date: 20080115
  Serious: Yes (Death)
  Sender: FDA-Public Use
  Company Number: JP-BRISTOL-MYERS SQUIBB COMPANY-13852736

PATIENT
  Age: 58 Year
  Sex: Female

DRUGS (2)
  1. BRIPLATIN [Suspect]
     Indication: OESOPHAGEAL CARCINOMA
     Route: 041
  2. FLUOROURACIL [Concomitant]

REACTIONS (1)
  - OESOPHAGEAL PERFORATION [None]
